FAERS Safety Report 23348342 (Version 3)
Quarter: 2024Q1

REPORT INFORMATION
  Report Type: Spontaneous
  Country: US (occurrence: US)
  Receive Date: 20231228
  Receipt Date: 20240303
  Transmission Date: 20240409
  Serious: Yes (Other)
  Sender: FDA-Public Use
  Company Number: US-BRISTOL-MYERS SQUIBB COMPANY-2023-186558

PATIENT
  Age: 65 Year
  Sex: Female

DRUGS (2)
  1. THALOMID [Suspect]
     Active Substance: THALIDOMIDE
     Indication: Gastrointestinal haemorrhage
     Dosage: FREQUENCY: TAKE 1 WHOLE CAPSULE BY MOUTH ONCE AT BEDTIME ON AN EMPTY STOMACH, AT LEAST 1 HOUR AFTER
     Route: 048
     Dates: start: 20231220, end: 20231230
  2. THALOMID [Suspect]
     Active Substance: THALIDOMIDE
     Dosage: THERAPY RESUMED
     Dates: start: 202401

REACTIONS (4)
  - Off label use [Not Recovered/Not Resolved]
  - Somnolence [Not Recovered/Not Resolved]
  - Rash [Recovered/Resolved]
  - Food poisoning [Recovered/Resolved]
